FAERS Safety Report 10211689 (Version 6)
Quarter: 2014Q3

REPORT INFORMATION
  Report Type: Spontaneous
  Country: US (occurrence: None)
  Receive Date: 20140528
  Receipt Date: 20140825
  Transmission Date: 20150326
  Serious: Yes (Hospitalization, Other)
  Sender: FDA-Public Use
  Company Number: UNT-2014-000710

PATIENT
  Age: 66 Year
  Sex: Female
  Weight: 73 kg

DRUGS (4)
  1. LETAIRIS [Concomitant]
     Active Substance: AMBRISENTAN
  2. REMODULIN [Suspect]
     Active Substance: TREPROSTINIL
     Indication: PULMONARY ARTERIAL HYPERTENSION
     Dosage: 0.060 UG/KG/MIN, CONTINUING, IV DRIP
     Route: 041
     Dates: start: 20130514
  3. REVATIO (SILDENAFIL CITRATE) [Concomitant]
  4. ADEMPAS (RIOCIGUAT) [Concomitant]

REACTIONS (6)
  - Iron deficiency anaemia [None]
  - Fluid retention [None]
  - Pulmonary arterial hypertension [None]
  - Oedema peripheral [None]
  - Cardiac failure congestive [None]
  - Pain in extremity [None]

NARRATIVE: CASE EVENT DATE: 20140514
